FAERS Safety Report 4478841-4 (Version None)
Quarter: 2004Q3

REPORT INFORMATION
  Report Type: 
  Country: None (occurrence: None)
  Receive Date: 20040923
  Receipt Date: 20040810
  Transmission Date: 20050211
  Serious: No
  Sender: FDA-Public Use
  Company Number: USA040875119

PATIENT
  Age: 68 Year
  Sex: Male
  Weight: 66 kg

DRUGS (1)
  1. FORTEO [Suspect]
     Indication: OSTEOPOROSIS
     Dosage: 20 UG/1 DAY
     Dates: start: 20040809

REACTIONS (4)
  - ARTHRALGIA [None]
  - DIZZINESS [None]
  - MUSCULOSKELETAL STIFFNESS [None]
  - NAUSEA [None]
